FAERS Safety Report 25872957 (Version 3)
Quarter: 2025Q4

REPORT INFORMATION
  Report Type: Spontaneous
  Country: CA (occurrence: CA)
  Receive Date: 20251002
  Receipt Date: 20251022
  Transmission Date: 20260118
  Serious: Yes (Life-Threatening, Hospitalization, Other)
  Sender: TEVA
  Company Number: CA-TEVA-VS-3376787

PATIENT
  Age: 40 Year
  Sex: Female

DRUGS (20)
  1. LACTULOSE [Suspect]
     Active Substance: LACTULOSE
     Indication: Encephalitis autoimmune
     Route: 065
     Dates: start: 202304
  2. PREDNISONE [Suspect]
     Active Substance: PREDNISONE
     Indication: Capillary leak syndrome
     Route: 065
     Dates: start: 20230403
  3. PREDNISONE [Suspect]
     Active Substance: PREDNISONE
     Indication: Capillary leak syndrome
     Route: 065
     Dates: start: 20230424
  4. PREDNISONE [Suspect]
     Active Substance: PREDNISONE
     Indication: Capillary leak syndrome
     Route: 065
     Dates: start: 20230428
  5. BEVACIZUMAB [Suspect]
     Active Substance: BEVACIZUMAB
     Indication: Squamous cell carcinoma of the cervix
     Route: 065
  6. FUROSEMIDE [Suspect]
     Active Substance: FUROSEMIDE
     Indication: Generalised oedema
     Route: 042
     Dates: start: 202304
  7. MIDODRINE [Suspect]
     Active Substance: MIDODRINE
     Indication: Generalised oedema
     Route: 065
     Dates: start: 20230606
  8. PEMBROLIZUMAB [Suspect]
     Active Substance: PEMBROLIZUMAB
     Indication: Squamous cell carcinoma of the cervix
     Dosage: SIX 3-WEEKLY CYCLES
     Route: 065
  9. RITUXIMAB [Suspect]
     Active Substance: RITUXIMAB
     Indication: Capillary leak syndrome
     Dosage: TOTAL 2 DOSES RECEIVED
     Route: 065
     Dates: start: 20230509, end: 20230601
  10. METHYLPREDNISOLONE [Suspect]
     Active Substance: METHYLPREDNISOLONE
     Indication: Capillary leak syndrome
     Route: 065
     Dates: start: 20230417, end: 20230424
  11. METHYLPREDNISOLONE [Suspect]
     Active Substance: METHYLPREDNISOLONE
     Indication: Capillary leak syndrome
     Route: 065
  12. AXITINIB [Suspect]
     Active Substance: AXITINIB
     Indication: Capillary leak syndrome
     Route: 065
     Dates: start: 20230624
  13. LANREOTIDE [Suspect]
     Active Substance: LANREOTIDE
     Indication: Generalised oedema
     Route: 065
     Dates: start: 20230606
  14. LANREOTIDE [Suspect]
     Active Substance: LANREOTIDE
     Indication: Generalised oedema
     Route: 065
  15. ALBUMIN HUMAN [Suspect]
     Active Substance: ALBUMIN HUMAN
     Indication: Generalised oedema
     Route: 042
     Dates: start: 20230602
  16. OCTREOTIDE [Suspect]
     Active Substance: OCTREOTIDE
     Indication: Generalised oedema
     Route: 065
     Dates: start: 20230606
  17. LEVETIRACETAM [Suspect]
     Active Substance: LEVETIRACETAM
     Indication: Seizure
     Route: 065
     Dates: start: 20230417
  18. AMILORIDE [Suspect]
     Active Substance: AMILORIDE
     Indication: Generalised oedema
     Route: 065
     Dates: start: 202304
  19. MYCOPHENOLATE MOFETIL [Suspect]
     Active Substance: MYCOPHENOLATE MOFETIL
     Indication: Capillary leak syndrome
     Dosage: 2 DOSES
     Route: 065
     Dates: start: 20230413, end: 20230414
  20. THEOPHYLLINE [Suspect]
     Active Substance: THEOPHYLLINE
     Indication: Product used for unknown indication
     Route: 065
     Dates: start: 20230613, end: 20230624

REACTIONS (12)
  - Capillary leak syndrome [Recovering/Resolving]
  - Thyroid disorder [Recovered/Resolved]
  - Cytokine release syndrome [Recovering/Resolving]
  - Multiple organ dysfunction syndrome [Unknown]
  - Autoimmune hepatitis [Recovering/Resolving]
  - Encephalitis autoimmune [Recovering/Resolving]
  - Toxicity to various agents [Unknown]
  - Seizure [Recovering/Resolving]
  - Generalised oedema [Unknown]
  - Product ineffective [Unknown]
  - Rebound effect [Unknown]
  - Cardiomyopathy [Recovering/Resolving]

NARRATIVE: CASE EVENT DATE: 20230101
